FAERS Safety Report 7269770-1 (Version None)
Quarter: 2011Q1

REPORT INFORMATION
  Report Type: 
  Country: None (occurrence: None)
  Receive Date: 20110202
  Receipt Date: 20110128
  Transmission Date: 20110831
  Serious: Yes (Other)
  Sender: FDA-Public Use
  Company Number: BR-PFIZER INC-2011020404

PATIENT
  Age: 19 Year
  Sex: Male
  Weight: 74 kg

DRUGS (1)
  1. TERRAMYCIN V CAP [Suspect]
     Indication: ACNE
     Dosage: 500 MG, 2X/DAY
     Route: 048
     Dates: start: 20110127, end: 20110127

REACTIONS (3)
  - NAUSEA [None]
  - HAEMATEMESIS [None]
  - HEADACHE [None]
